FAERS Safety Report 8133196-9 (Version None)
Quarter: 2012Q1

REPORT INFORMATION
  Report Type: 
  Country: None (occurrence: None)
  Receive Date: 20120213
  Receipt Date: 20120202
  Transmission Date: 20120608
  Serious: Yes (Other)
  Sender: FDA-Public Use
  Company Number: PHHY2012CA010429

PATIENT
  Sex: Male

DRUGS (1)
  1. ZOLEDRONOC ACID [Suspect]
     Indication: SPINAL FRACTURE
     Dosage: 0.1 MG/KG.YEAR, DIVIDED THE DOSES IN EVERY 6 MONTHS

REACTIONS (8)
  - CARDIAC FAILURE [None]
  - VOMITING [None]
  - NAUSEA [None]
  - PARAESTHESIA [None]
  - WEIGHT DECREASED [None]
  - APHAGIA [None]
  - HYPOCALCAEMIA [None]
  - BONE DENSITY INCREASED [None]
